FAERS Safety Report 14480681 (Version 1)
Quarter: 2018Q1

REPORT INFORMATION
  Report Type: Other
  Country: GB (occurrence: IT)
  Receive Date: 20180202
  Receipt Date: 20180202
  Transmission Date: 20180509
  Serious: Yes (Other)
  Sender: FDA-Public Use
  Company Number: GB-DIMETHAID UK LIMITED-DIM-001623-2017

PATIENT
  Age: 36 Year
  Sex: Female

DRUGS (5)
  1. PENNSAID [Suspect]
     Active Substance: DICLOFENAC SODIUM
     Indication: SCIATICA
     Dosage: 75 MG, QD
     Route: 065
  2. NIMESULIDE [Suspect]
     Active Substance: NIMESULIDE
     Dosage: 200 MG, QD
     Route: 065
  3. PARACETAMOL [Suspect]
     Active Substance: ACETAMINOPHEN
     Dosage: 1-2 G ONCE IN A DAY
     Route: 065
  4. NIMESULIDE [Suspect]
     Active Substance: NIMESULIDE
     Indication: SCIATICA
     Dosage: 100 MG, QD
     Route: 065
  5. PARACETAMOL [Suspect]
     Active Substance: ACETAMINOPHEN
     Indication: SCIATICA
     Dosage: 8-9 G ONCE IN A DAY
     Route: 065

REACTIONS (8)
  - Maternal exposure during pregnancy [Recovered/Resolved]
  - Labelled drug-drug interaction medication error [Recovered/Resolved]
  - Oligohydramnios [Unknown]
  - Contraindication to medical treatment [Unknown]
  - Overdose [Recovered/Resolved]
  - Product use issue [Recovered/Resolved]
  - Product use in unapproved indication [Recovered/Resolved]
  - Premature delivery [Unknown]
